FAERS Safety Report 18313271 (Version 1)
Quarter: 2020Q3

REPORT INFORMATION
  Report Type: Spontaneous
  Country: ES (occurrence: ES)
  Receive Date: 20200925
  Receipt Date: 20200925
  Transmission Date: 20201103
  Serious: Yes (Life-Threatening, Hospitalization)
  Sender: FDA-Public Use
  Company Number: ES-CADILA HEALTHCARE LIMITED-ES-ZYDUS-027616

PATIENT

DRUGS (6)
  1. SERTRALINE [Suspect]
     Active Substance: SERTRALINE HYDROCHLORIDE
     Indication: PRODUCT USED FOR UNKNOWN INDICATION
     Dosage: 50 MILLIGRAM
     Route: 048
     Dates: start: 201601
  2. SEGURIL [Suspect]
     Active Substance: FUROSEMIDE
     Indication: CARDIAC FAILURE
     Dosage: 120 MILLIGRAM,(INTERVAL :1 DAYS)
     Route: 048
     Dates: start: 20160710, end: 20160713
  3. ALDACTONE [Suspect]
     Active Substance: SPIRONOLACTONE
     Indication: CARDIAC FAILURE
     Dosage: 38 MILLIGRAM,(INTERVAL :1 DAYS)
     Route: 048
     Dates: end: 20160702
  4. HIDROCLOROTIAZIDA [Suspect]
     Active Substance: HYDROCHLOROTHIAZIDE
     Indication: CARDIAC FAILURE
     Dosage: 50 MILLIGRAM,(INTERVAL :1 DAYS)
     Route: 048
     Dates: start: 20160710, end: 20160721
  5. SEGURIL [Concomitant]
     Active Substance: FUROSEMIDE
     Indication: CARDIAC FAILURE ACUTE
     Dosage: 160 MILLIGRAM,(INTERVAL :1 DAYS)
     Route: 048
     Dates: end: 20160709
  6. SEGURIL [Suspect]
     Active Substance: FUROSEMIDE
     Indication: CARDIAC FAILURE
     Dosage: 160 MILLIGRAM,(INTERVAL :1 DAYS)
     Route: 048
     Dates: start: 20160714, end: 20160721

REACTIONS (2)
  - Hypokalaemia [Recovered/Resolved]
  - Hyponatraemia [Recovered/Resolved]

NARRATIVE: CASE EVENT DATE: 20160719
